FAERS Safety Report 5062097-8 (Version None)
Quarter: 2006Q3

REPORT INFORMATION
  Report Type: 
  Country: None (occurrence: None)
  Receive Date: 20060721
  Receipt Date: 20060711
  Transmission Date: 20061208
  Serious: Yes (Life-Threatening)
  Sender: FDA-Public Use
  Company Number: HQWYE780911JUL06

PATIENT
  Age: 41 Year
  Sex: Male

DRUGS (2)
  1. INDERAL [Suspect]
     Dosage: 30 MG 1X PER 1 DAY ORAL
     Route: 048
     Dates: start: 20060628, end: 20060630
  2. MERCAZOLE (THIAMAZOLE,) [Suspect]
     Dosage: ORAL
     Route: 048
     Dates: start: 20060628, end: 20060630

REACTIONS (2)
  - CARDIAC FAILURE [None]
  - MYOCARDITIS [None]
